FAERS Safety Report 7323965-7 (Version None)
Quarter: 2011Q1

REPORT INFORMATION
  Report Type: 
  Country: None (occurrence: None)
  Receive Date: 20110301
  Receipt Date: 20110221
  Transmission Date: 20110831
  Serious: Yes (Other)
  Sender: FDA-Public Use
  Company Number: B0702586A

PATIENT
  Sex: Female

DRUGS (7)
  1. CYMBALTA [Concomitant]
  2. REQUIP [Suspect]
     Indication: PARKINSON'S DISEASE
     Dosage: 8MG TWICE PER DAY
     Dates: start: 20110202
  3. CLONAZEPAM [Concomitant]
  4. MINIRIN [Concomitant]
  5. SINEMET [Concomitant]
  6. CENTYL [Concomitant]
  7. COZAAR [Concomitant]

REACTIONS (7)
  - VOMITING [None]
  - PRURITUS [None]
  - NAUSEA [None]
  - ILL-DEFINED DISORDER [None]
  - DIARRHOEA [None]
  - CHROMATURIA [None]
  - YELLOW SKIN [None]
